FAERS Safety Report 18186035 (Version 1)
Quarter: 2020Q3

REPORT INFORMATION
  Report Type: Spontaneous
  Country: US (occurrence: US)
  Receive Date: 20200824
  Receipt Date: 20200824
  Transmission Date: 20201103
  Serious: No
  Sender: FDA-Public Use
  Company Number: US-CELLTRION INC.-2020US020165

PATIENT

DRUGS (2)
  1. INFLIXIMAB (UNKNOWN) [Suspect]
     Active Substance: INFLIXIMAB
     Indication: CROHN^S DISEASE
     Dosage: UNK
  2. METHOTREXATE. [Concomitant]
     Active Substance: METHOTREXATE
     Indication: CROHN^S DISEASE
     Dosage: UNK

REACTIONS (2)
  - Condition aggravated [Recovered/Resolved]
  - Psoriasis [Recovered/Resolved]

NARRATIVE: CASE EVENT DATE: 201611
